FAERS Safety Report 23351725 (Version 2)
Quarter: 2024Q1

REPORT INFORMATION
  Report Type: Spontaneous
  Country: FR (occurrence: FR)
  Receive Date: 20231229
  Receipt Date: 20240318
  Transmission Date: 20240409
  Serious: Yes (Other)
  Sender: FDA-Public Use
  Company Number: None

PATIENT
  Age: 65 Year
  Sex: Male

DRUGS (1)
  1. EXFORGE [Suspect]
     Active Substance: AMLODIPINE BESYLATE\VALSARTAN
     Indication: Hypertension
     Dosage: 1 DOSAGE FORM, QD (1 COMPRIM? PAR JOUR)
     Route: 048

REACTIONS (5)
  - Gingival hypertrophy [Recovering/Resolving]
  - Periodontitis [Recovering/Resolving]
  - Tooth loss [Recovering/Resolving]
  - Dental plaque [Recovering/Resolving]
  - Tooth deposit [Recovering/Resolving]

NARRATIVE: CASE EVENT DATE: 20230101
